FAERS Safety Report 7912109-6 (Version None)
Quarter: 2011Q4

REPORT INFORMATION
  Report Type: 
  Country: None (occurrence: None)
  Receive Date: 20111114
  Receipt Date: 20111109
  Transmission Date: 20120403
  Serious: Yes (Hospitalization)
  Sender: FDA-Public Use
  Company Number: US-VERTEX PHARMACEUTICALS INC.-AE-2011-003038

PATIENT
  Sex: Female

DRUGS (9)
  1. NORVASC [Concomitant]
  2. FISH OIL [Concomitant]
  3. RIBAVIRIN [Concomitant]
     Indication: HEPATITIS C
     Dates: start: 20110101, end: 20111101
  4. PEGASYS [Concomitant]
     Indication: HEPATITIS C
     Dates: start: 20110101, end: 20111101
  5. CALCIUM WITH VITAMIN D [Concomitant]
  6. CLARITIN [Concomitant]
  7. PRILOSEC [Concomitant]
  8. INCIVEK [Suspect]
     Indication: HEPATITIS C
     Route: 048
     Dates: start: 20110101, end: 20111101
  9. ATIVAN [Concomitant]

REACTIONS (3)
  - RASH GENERALISED [None]
  - PERIORBITAL OEDEMA [None]
  - PRURITUS [None]
